FAERS Safety Report 11215229 (Version 1)
Quarter: 2015Q2

REPORT INFORMATION
  Report Type: Spontaneous
  Country: FR (occurrence: None)
  Receive Date: 20150622
  Receipt Date: 20150622
  Transmission Date: 20150821
  Serious: Yes (Hospitalization, Other)
  Sender: FDA-Public Use
  Company Number: ADR-2015-01169

PATIENT
  Age: 28 Year
  Sex: Male
  Weight: 76 kg

DRUGS (5)
  1. SOLIAN [Suspect]
     Active Substance: AMISULPRIDE
     Dosage: 100 MG/DAY; SEE B5
     Dates: start: 201309, end: 20131116
  2. ABILIFY [Suspect]
     Active Substance: ARIPIPRAZOLE
  3. VALIUM [Suspect]
     Active Substance: DIAZEPAM
     Route: 048
  4. LEPTICUR [Suspect]
     Active Substance: TROPATEPINE HYDROCHLORIDE
     Dosage: ONE INJECTION
  5. BACLOFEN INTRATHECAL [Suspect]
     Active Substance: BACLOFEN
     Indication: ALCOHOLISM
     Dosage: SEE B5
     Dates: start: 201305

REACTIONS (14)
  - Tremor [None]
  - Salivary hypersecretion [None]
  - Tachycardia [None]
  - Protrusion tongue [None]
  - Anxiety [None]
  - Hyperhidrosis [None]
  - Neuroleptic malignant syndrome [None]
  - Diet noncompliance [None]
  - Depressed mood [None]
  - Cogwheel rigidity [None]
  - Dysarthria [None]
  - Leukocytosis [None]
  - Hyperthermia [None]
  - Extrapyramidal disorder [None]

NARRATIVE: CASE EVENT DATE: 20131111
